FAERS Safety Report 24003894 (Version 2)
Quarter: 2024Q3

REPORT INFORMATION
  Report Type: Spontaneous
  Country: JP (occurrence: JP)
  Receive Date: 20240624
  Receipt Date: 20240807
  Transmission Date: 20241016
  Serious: Yes (Death, Hospitalization, Other)
  Sender: MERCK
  Company Number: JP-MSD-M2023-57159

PATIENT
  Age: 90 Year
  Sex: Female

DRUGS (1)
  1. KEYTRUDA [Suspect]
     Active Substance: PEMBROLIZUMAB
     Indication: Lung adenocarcinoma stage IV
     Dosage: 200 MILLIGRAM, Q3W
     Route: 041

REACTIONS (1)
  - Immune-mediated myocarditis [Fatal]

NARRATIVE: CASE EVENT DATE: 20230101
